FAERS Safety Report 16600770 (Version 3)
Quarter: 2019Q3

REPORT INFORMATION
  Report Type: Report from Study
  Country: BE (occurrence: BE)
  Receive Date: 20190719
  Receipt Date: 20190828
  Transmission Date: 20191004
  Serious: Yes (Life-Threatening, Hospitalization)
  Sender: FDA-Public Use
  Company Number: PHHO2019BE006135

PATIENT
  Age: 7 Year
  Sex: Male
  Weight: 20.4 kg

DRUGS (6)
  1. RISPERDAL [Concomitant]
     Active Substance: RISPERIDONE
     Indication: BEHAVIOUR DISORDER
     Dosage: 0.5 ML, QD
     Route: 065
     Dates: start: 20140611
  2. ABILIFY [Concomitant]
     Active Substance: ARIPIPRAZOLE
     Indication: BEHAVIOUR DISORDER
     Dosage: 5 MG, QD
     Route: 065
     Dates: start: 20170611
  3. EVEROLIMUS. [Suspect]
     Active Substance: EVEROLIMUS
     Dosage: 6 MG, QD
     Route: 048
     Dates: start: 20170901
  4. KEPPRA [Concomitant]
     Active Substance: LEVETIRACETAM
     Indication: EPILEPSY
     Dosage: 500 MG, BID
     Route: 065
     Dates: start: 2012
  5. MELATONIN [Concomitant]
     Active Substance: MELATONIN
     Indication: SLEEP DISORDER
     Dosage: 2.1 MG, QD
     Route: 065
     Dates: start: 20181001
  6. LAMICTAL [Concomitant]
     Active Substance: LAMOTRIGINE
     Indication: EPILEPSY
     Dosage: 75 MG, BID
     Route: 065
     Dates: start: 201405

REACTIONS (3)
  - Sepsis [Recovered/Resolved]
  - Venous thrombosis [Recovering/Resolving]
  - Generalised tonic-clonic seizure [Recovered/Resolved]

NARRATIVE: CASE EVENT DATE: 2019
